FAERS Safety Report 26062793 (Version 2)
Quarter: 2025Q4

REPORT INFORMATION
  Report Type: Spontaneous
  Country: US (occurrence: US)
  Receive Date: 20251119
  Receipt Date: 20251120
  Transmission Date: 20260117
  Serious: No
  Sender: ABBVIE
  Company Number: US-ABBVIE-6553725

PATIENT
  Age: 94 Year
  Sex: Female

DRUGS (1)
  1. CREON [Suspect]
     Active Substance: PANCRELIPASE AMYLASE\PANCRELIPASE LIPASE\PANCRELIPASE PROTEASE
     Indication: Diarrhoea
     Route: 048
     Dates: start: 202510, end: 202511

REACTIONS (6)
  - Faeces discoloured [Recovering/Resolving]
  - Diarrhoea [Unknown]
  - Drug ineffective [Not Recovered/Not Resolved]
  - Pancreatic disorder [Unknown]
  - Frequent bowel movements [Recovering/Resolving]
  - Feeling abnormal [Unknown]

NARRATIVE: CASE EVENT DATE: 20250101
